FAERS Safety Report 6030794-3 (Version None)
Quarter: 2009Q1

REPORT INFORMATION
  Report Type: 
  Country: None (occurrence: None)
  Receive Date: 20090107
  Receipt Date: 20081230
  Transmission Date: 20090719
  Serious: Yes (Hospitalization)
  Sender: FDA-Public Use
  Company Number: PHHY2008GB27982

PATIENT
  Sex: Male

DRUGS (6)
  1. CLOZARIL [Suspect]
     Indication: SCHIZOPHRENIA
     Dosage: 350 MG, BID
     Route: 048
     Dates: start: 20041112
  2. ALBUTEROL [Concomitant]
     Dosage: 2 PUFFS A DAY
  3. LANSOPRAZOLE [Concomitant]
     Dosage: 30MG
     Route: 048
  4. SULPIRIDE [Concomitant]
     Dosage: 300 MG, BID
     Route: 048
  5. LACTULOSE [Concomitant]
     Dosage: 10 ML, BID
     Route: 048
  6. SENNA [Concomitant]
     Dosage: TWICE NOCTE
     Route: 048

REACTIONS (9)
  - ABDOMINAL PAIN UPPER [None]
  - BLOOD SODIUM DECREASED [None]
  - C-REACTIVE PROTEIN INCREASED [None]
  - LYMPHOCYTE COUNT INCREASED [None]
  - MONOCYTE COUNT INCREASED [None]
  - NEUTROPHIL COUNT INCREASED [None]
  - PLATELET COUNT INCREASED [None]
  - VOMITING [None]
  - WHITE BLOOD CELL COUNT INCREASED [None]
